FAERS Safety Report 8847365 (Version 2)
Quarter: 2012Q4

REPORT INFORMATION
  Report Type: 
  Country: PL (occurrence: PL)
  Receive Date: 20121018
  Receipt Date: 20121108
  Transmission Date: 20130627
  Serious: Yes (Other)
  Sender: FDA-Public Use
  Company Number: PL-PFIZER INC-2012255800

PATIENT
  Age: 1 Year
  Sex: Male
  Weight: 12.5 kg

DRUGS (3)
  1. BENEFIX [Suspect]
     Indication: HEMOPHILIA
     Dosage: 25 IU/kg, 2x/week (for prophylaxis)
     Route: 042
     Dates: start: 20110526
  2. BENEFIX [Suspect]
     Dosage: 50 IU/kg, 2x/week (on demand)
     Route: 042
     Dates: start: 20110526
  3. BENEFIX [Suspect]
     Dosage: at present: 500 IU x 2
     Route: 042

REACTIONS (1)
  - Anti factor IX antibody positive [Not Recovered/Not Resolved]
